FAERS Safety Report 7654220-3 (Version None)
Quarter: 2011Q3

REPORT INFORMATION
  Report Type: 
  Country: None (occurrence: None)
  Receive Date: 20110803
  Receipt Date: 20110729
  Transmission Date: 20111222
  Serious: Yes (Other)
  Sender: FDA-Public Use
  Company Number: US-PFIZER INC-2011150002

PATIENT
  Sex: Female

DRUGS (3)
  1. DILANTIN [Suspect]
     Dosage: 50MG CAPSULES TWO TIMES AS 6 CAPSULES IN MORNING AND 6 CAPSULES IN NIGHT
  2. DILANTIN [Suspect]
     Dosage: 100MG CAPSULES TWO TIMES A DAY AS 3 CAPSULES IN MORNING AND 3 CAPSULES IN NIGHT
  3. DILANTIN [Suspect]
     Dosage: 600 MG, 2X/DAY

REACTIONS (1)
  - CONVULSION [None]
